FAERS Safety Report 13759126 (Version 1)
Quarter: 2017Q3

REPORT INFORMATION
  Report Type: Report from Study
  Country: US (occurrence: US)
  Receive Date: 20170717
  Receipt Date: 20170717
  Transmission Date: 20171127
  Serious: Yes (Disabling)
  Sender: FDA-Public Use
  Company Number: US-IPSEN BIOPHARMACEUTICALS, INC.-2017-07274

PATIENT
  Age: 62 Year
  Sex: Male

DRUGS (2)
  1. LANREOTIDE AUTOGEL [Suspect]
     Active Substance: LANREOTIDE
     Indication: PANCREATIC CARCINOMA
     Dosage: 120 MG
     Route: 058
     Dates: start: 20170106
  2. LANREOTIDE AUTOGEL [Suspect]
     Active Substance: LANREOTIDE
     Indication: OFF LABEL USE

REACTIONS (5)
  - Depression [Not Recovered/Not Resolved]
  - Fatigue [Not Recovered/Not Resolved]
  - Off label use [Unknown]
  - Flatulence [Not Recovered/Not Resolved]
  - Abdominal distension [Not Recovered/Not Resolved]

NARRATIVE: CASE EVENT DATE: 201701
